FAERS Safety Report 19779483 (Version 2)
Quarter: 2021Q3

REPORT INFORMATION
  Report Type: Spontaneous
  Country: BE (occurrence: BE)
  Receive Date: 20210902
  Receipt Date: 20210909
  Transmission Date: 20211014
  Serious: Yes (Life-Threatening, Hospitalization, Other)
  Sender: FDA-Public Use
  Company Number: BE-PFIZER INC-202101101383

PATIENT
  Age: 81 Year
  Sex: Male

DRUGS (3)
  1. EPINEPHRINE. [Suspect]
     Active Substance: EPINEPHRINE
     Dosage: 1 MG
  2. EPINEPHRINE. [Suspect]
     Active Substance: EPINEPHRINE
     Dosage: 3 MG
  3. NOREPINEPHRINE BITARTRATE. [Suspect]
     Active Substance: NOREPINEPHRINE BITARTRATE
     Dosage: MAXIMUM DOSE, 0.6 MG/KG/MIN

REACTIONS (2)
  - Acquired left ventricle outflow tract obstruction [Recovered/Resolved]
  - Hypovolaemia [Recovering/Resolving]
